FAERS Safety Report 11569272 (Version 1)
Quarter: 2015Q3

REPORT INFORMATION
  Report Type: Spontaneous
  Country: FR (occurrence: FR)
  Receive Date: 20150929
  Receipt Date: 20150929
  Transmission Date: 20151125
  Serious: Yes (Other)
  Sender: FDA-Public Use
  Company Number: FR-JNJFOC-20150919901

PATIENT
  Age: 35 Year
  Sex: Male

DRUGS (1)
  1. XEPLION [Suspect]
     Active Substance: PALIPERIDONE PALMITATE
     Indication: PRODUCT USED FOR UNKNOWN INDICATION
     Route: 030

REACTIONS (5)
  - Rhabdomyolysis [Unknown]
  - Abnormal behaviour [Unknown]
  - Acute kidney injury [Unknown]
  - Mental disorder [Unknown]
  - Thought blocking [Unknown]
